FAERS Safety Report 8182101-8 (Version None)
Quarter: 2012Q1

REPORT INFORMATION
  Report Type: 
  Country: None (occurrence: None)
  Receive Date: 20120302
  Receipt Date: 20120223
  Transmission Date: 20120608
  Serious: Yes (Other)
  Sender: FDA-Public Use
  Company Number: PHHY2012BE013702

PATIENT
  Age: 57 Year
  Sex: Female

DRUGS (4)
  1. ZOMETA [Suspect]
     Indication: METASTASES TO BONE
     Dosage: UNK
     Dates: start: 20110801, end: 20120220
  2. RADIOTHERAPY [Concomitant]
     Dosage: UNK
  3. NAVELBINE [Concomitant]
     Indication: BREAST CANCER
     Dosage: UNK UKN, UNK
     Route: 042
  4. XELODA [Concomitant]
     Indication: BREAST CANCER
     Dosage: UNK UKN, UNK
     Route: 065

REACTIONS (6)
  - OSTEONECROSIS OF JAW [None]
  - BONE PAIN [None]
  - ULCER [None]
  - FISTULA [None]
  - BONE LESION [None]
  - EXPOSED BONE IN JAW [None]
